FAERS Safety Report 15136090 (Version 1)
Quarter: 2018Q3

REPORT INFORMATION
  Report Type: Spontaneous
  Country: US (occurrence: US)
  Receive Date: 20180617
  Receipt Date: 20180617
  Transmission Date: 20181010
  Serious: Yes (Other)
  Sender: FDA-Public Use
  Company Number: None

PATIENT
  Age: 64 Year
  Sex: Female
  Weight: 69.75 kg

DRUGS (12)
  1. IBRANCE [Concomitant]
     Active Substance: PALBOCICLIB
  2. DIOVAN [Concomitant]
     Active Substance: VALSARTAN
  3. MIRAPEX [Concomitant]
     Active Substance: PRAMIPEXOLE DIHYDROCHLORIDE
  4. XGEVA [Suspect]
     Active Substance: DENOSUMAB
     Indication: PRODUCT USED FOR UNKNOWN INDICATION
     Dosage: ?          QUANTITY:1 INJECTION(S);OTHER FREQUENCY:ONCE EVERY 4 WEEKS;?
     Route: 058
     Dates: start: 20130315, end: 20151215
  5. FASLODEX [Concomitant]
     Active Substance: FULVESTRANT
  6. NEURONTIN [Concomitant]
     Active Substance: GABAPENTIN
  7. PROTONIX [Concomitant]
     Active Substance: PANTOPRAZOLE SODIUM
  8. MAGNESIUM [Concomitant]
     Active Substance: MAGNESIUM
  9. MOTRIN [Concomitant]
     Active Substance: IBUPROFEN
  10. VITAMIN B12 [Concomitant]
     Active Substance: CYANOCOBALAMIN
  11. METOPROLOL. [Concomitant]
     Active Substance: METOPROLOL
  12. VITAMIN C [Concomitant]
     Active Substance: ASCORBIC ACID

REACTIONS (5)
  - Tooth extraction [None]
  - Osteonecrosis of jaw [None]
  - Bone loss [None]
  - Osteomyelitis [None]
  - Loose tooth [None]

NARRATIVE: CASE EVENT DATE: 20151215
